FAERS Safety Report 24862307 (Version 1)
Quarter: 2025Q1

REPORT INFORMATION
  Report Type: Spontaneous
  Country: US (occurrence: US)
  Receive Date: 20250120
  Receipt Date: 20250120
  Transmission Date: 20250409
  Serious: No
  Sender: PFIZER
  Company Number: US-PFIZER INC-PV202400141904

PATIENT
  Age: 68 Year
  Sex: Female

DRUGS (1)
  1. TUKYSA [Suspect]
     Active Substance: TUCATINIB
     Dosage: TAKE TWO 150 MG TABLETS BY MOUTH TWICE DAILY
     Route: 048
     Dates: end: 20250115

REACTIONS (1)
  - Neoplasm progression [Unknown]
